FAERS Safety Report 5905322-0 (Version None)
Quarter: 2008Q4

REPORT INFORMATION
  Report Type: 
  Country: None (occurrence: None)
  Receive Date: 20081001
  Receipt Date: 20080919
  Transmission Date: 20090506
  Serious: Yes (Other)
  Sender: FDA-Public Use
  Company Number: AR-PFIZER INC-2008056343

PATIENT
  Sex: Female

DRUGS (4)
  1. NEURONTIN [Suspect]
     Indication: BACK PAIN
     Route: 048
     Dates: start: 20080601, end: 20080706
  2. ENALAPRIL MALEATE [Concomitant]
     Route: 048
     Dates: start: 19880101
  3. ATENOLOL [Concomitant]
     Route: 048
     Dates: start: 19880101
  4. AMLODIPINE [Concomitant]
     Route: 048
     Dates: start: 19880101

REACTIONS (9)
  - DIZZINESS [None]
  - EYE PAIN [None]
  - HYPERHIDROSIS [None]
  - HYPOTENSION [None]
  - MALAISE [None]
  - MYOPIA [None]
  - OPTIC NERVE DISORDER [None]
  - VISION BLURRED [None]
  - VISUAL FIELD DEFECT [None]
